FAERS Safety Report 7358914-9 (Version None)
Quarter: 2011Q1

REPORT INFORMATION
  Report Type: 
  Country: None (occurrence: None)
  Receive Date: 20110317
  Receipt Date: 20110307
  Transmission Date: 20110831
  Serious: Yes (Hospitalization)
  Sender: FDA-Public Use
  Company Number: ES-BRISTOL-MYERS SQUIBB COMPANY-15590920

PATIENT
  Age: 62 Year
  Sex: Male

DRUGS (19)
  1. FUROSEMIDE [Suspect]
     Dosage: 1DF:40 UNIT NOS
  2. LOSARTAN POTASSIUM [Suspect]
     Dosage: 1DF:10 UNIT NOS
  3. TRANXILIUM [Concomitant]
     Dosage: 1DF:10 UNIT NOS
  4. SIMVASTATIN [Concomitant]
  5. OXYGEN [Concomitant]
  6. MAYGACE [Interacting]
     Dosage: 1 DF=40MG/ML HIGH DOSES
     Route: 048
     Dates: start: 20101201, end: 20101201
  7. SINTROM [Interacting]
     Indication: ATRIAL FIBRILLATION
     Route: 048
     Dates: start: 20100101, end: 20101231
  8. VENTOLIN [Concomitant]
  9. SPIRIVA [Concomitant]
  10. LEVOFLOXACIN [Interacting]
     Route: 048
     Dates: start: 20101201, end: 20101201
  11. METOPROLOL SUCCINATE [Suspect]
     Dosage: 1DF:100 AND 50 UNIT NOS
  12. ACETYLSALICYLIC ACID [Concomitant]
  13. SERETIDE [Concomitant]
     Dosage: 1DF:50/500 UNIT NOS
  14. ALLOPURINOL [Concomitant]
  15. ACETYLSALICYLIC ACID [Concomitant]
  16. AMIODARONE HCL [Concomitant]
     Dosage: 1DF:300 UNIT NOS
  17. FLUMIL [Concomitant]
  18. AZITHROMYCIN [Concomitant]
  19. AMLODIPINE [Suspect]

REACTIONS (3)
  - EPISTAXIS [None]
  - HYPOTENSION [None]
  - DRUG INTERACTION [None]
